FAERS Safety Report 11943174 (Version 1)
Quarter: 2016Q1

REPORT INFORMATION
  Report Type: Spontaneous
  Country: US (occurrence: US)
  Receive Date: 20160125
  Receipt Date: 20160125
  Transmission Date: 20160526
  Serious: Yes (Hospitalization)
  Sender: FDA-Public Use
  Company Number: US-UNITED THERAPEUTICS-UNT-2015-011132

PATIENT
  Age: 31 Year
  Sex: Female
  Weight: 106.58 kg

DRUGS (2)
  1. ADCIRCA [Concomitant]
     Active Substance: TADALAFIL
     Indication: PRODUCT USED FOR UNKNOWN INDICATION
  2. REMODULIN [Suspect]
     Active Substance: TREPROSTINIL
     Indication: PULMONARY ARTERIAL HYPERTENSION
     Dosage: 0.072 ?G/KG, CONTINUING
     Route: 041
     Dates: start: 20110819

REACTIONS (5)
  - Device related infection [Unknown]
  - Nausea [Unknown]
  - Dermatitis contact [Unknown]
  - Injection site rash [Unknown]
  - Vomiting [Unknown]

NARRATIVE: CASE EVENT DATE: 201509
